FAERS Safety Report 7345042-1 (Version None)
Quarter: 2011Q1

REPORT INFORMATION
  Report Type: 
  Country: None (occurrence: None)
  Receive Date: 20110310
  Receipt Date: 20110301
  Transmission Date: 20110831
  Serious: Yes (Hospitalization)
  Sender: FDA-Public Use
  Company Number: US-ELI_LILLY_AND_COMPANY-US201008001860

PATIENT
  Sex: Female
  Weight: 131.5 kg

DRUGS (15)
  1. FUROSEMIDE [Concomitant]
  2. METOCLOPRAMIDE HCL [Concomitant]
  3. GABAPENTINE [Concomitant]
  4. SPIRIVA [Concomitant]
  5. LOSARTAN POTASSIUM [Concomitant]
  6. MAGNESIUM CHLORIDE [Concomitant]
  7. CARVEDILOL [Concomitant]
  8. VITAMIN D [Concomitant]
  9. FORTEO [Suspect]
     Indication: OSTEOPOROSIS
     Dosage: 20 UG, DAILY (1/D)
     Route: 065
     Dates: start: 20100429
  10. CHLORACON [Concomitant]
  11. KLOR-CON [Concomitant]
  12. COLCHICIN [Concomitant]
  13. INSULIN [Concomitant]
  14. WARFARIN [Concomitant]
  15. COLCHICINE [Concomitant]

REACTIONS (8)
  - BRONCHITIS [None]
  - WEIGHT DECREASED [None]
  - NEPHROLITHIASIS [None]
  - RENAL PAIN [None]
  - DECREASED APPETITE [None]
  - PAIN [None]
  - BACK PAIN [None]
  - ILL-DEFINED DISORDER [None]
